FAERS Safety Report 4734929-1 (Version None)
Quarter: 2005Q3

REPORT INFORMATION
  Report Type: 
  Country: None (occurrence: None)
  Receive Date: 20050729
  Receipt Date: 20050714
  Transmission Date: 20060218
  Serious: No
  Sender: FDA-Public Use
  Company Number: US015629

PATIENT
  Age: 24 Month
  Sex: Male
  Weight: 15.8759 kg

DRUGS (1)
  1. ACTIQ [Suspect]
     Dosage: 1200 UG ONCE BUCCAL
     Route: 002
     Dates: start: 20050714, end: 20050714

REACTIONS (2)
  - ACCIDENTAL EXPOSURE [None]
  - MYDRIASIS [None]
